FAERS Safety Report 8241314-7 (Version None)
Quarter: 2012Q1

REPORT INFORMATION
  Report Type: 
  Country: None (occurrence: None)
  Receive Date: 20120328
  Receipt Date: 20120322
  Transmission Date: 20120608
  Serious: Yes (Death, Hospitalization, Other)
  Sender: FDA-Public Use
  Company Number: US-PFIZER INC-2012075458

PATIENT
  Sex: Female
  Weight: 68.027 kg

DRUGS (14)
  1. LACTULOSE [Concomitant]
     Indication: CONSTIPATION
     Dosage: UNK
  2. LEVOTHYROXINE [Concomitant]
     Indication: BASEDOW'S DISEASE
     Dosage: 88 MCG, UNK
  3. RITALIN [Concomitant]
     Dosage: UNK MG, UNK
  4. TIZANIDINE [Concomitant]
     Dosage: 2 MG, 1X/DAY
  5. LYRICA [Suspect]
     Indication: SPINAL CORD INJURY
     Dosage: 50 MG, 1X/DAY
     Route: 048
     Dates: start: 20120301, end: 20120301
  6. GABAPENTIN [Concomitant]
     Indication: CONVULSION
     Dosage: 400 MG, 3X/DAY
  7. LYRICA [Suspect]
     Indication: NEUROPATHY PERIPHERAL
     Dosage: 50 MG, 2X/DAY
     Route: 048
     Dates: start: 20120301
  8. BACLOFEN [Concomitant]
     Dosage: 2000 UNITS, UNK
     Route: 048
  9. POLYETHYLENE GLYCOL [Concomitant]
     Indication: DRY EYE
     Dosage: UNK
  10. PROZAC [Concomitant]
     Dosage: UNK MG, UNK
  11. GUAR GUM [Concomitant]
     Dosage: UNK, 1X/DAY
  12. CALTRATE 600+D [Concomitant]
     Dosage: UNK
  13. FUROSEMIDE [Concomitant]
     Dosage: UNK, 3X/DAY
  14. ALENDRONATE SODIUM [Concomitant]
     Dosage: 70 MG, UNK

REACTIONS (6)
  - SEPSIS [None]
  - NEURALGIA [None]
  - DRUG INEFFECTIVE [None]
  - PULMONARY OEDEMA [None]
  - PNEUMONIA [None]
  - INFECTION [None]
